FAERS Safety Report 24078391 (Version 1)
Quarter: 2024Q3

REPORT INFORMATION
  Report Type: Spontaneous
  Country: CA (occurrence: CA)
  Receive Date: 20240711
  Receipt Date: 20240711
  Transmission Date: 20241017
  Serious: Yes (Other)
  Sender: XELLIA PHARMACEUTICALS
  Company Number: CA-MLMSERVICE-20240624-PI109610-00329-1

PATIENT
  Age: 62 Year
  Sex: Male

DRUGS (6)
  1. VANCOMYCIN [Suspect]
     Active Substance: VANCOMYCIN
     Indication: Device related infection
  2. DASATINIB [Concomitant]
     Active Substance: DASATINIB
     Indication: Philadelphia chromosome positive
     Dosage: FROM DAY 8 ONWARDS
     Route: 048
  3. CYTARABINE [Concomitant]
     Active Substance: CYTARABINE
     Indication: Acute myeloid leukaemia
     Dosage: STANDARD DOSE
  4. DAUNORUBICIN [Concomitant]
     Active Substance: DAUNORUBICIN
     Indication: Acute myeloid leukaemia
     Dosage: STANDARD DOSE
  5. VANCOMYCIN [Suspect]
     Active Substance: VANCOMYCIN
     Indication: Enterococcal bacteraemia
  6. DASATINIB [Concomitant]
     Active Substance: DASATINIB
     Indication: Acute myeloid leukaemia
     Dosage: FROM DAY 8 ONWARDS
     Route: 048

REACTIONS (1)
  - Nephropathy toxic [Unknown]
